FAERS Safety Report 14901338 (Version 2)
Quarter: 2018Q4

REPORT INFORMATION
  Report Type: Spontaneous
  Country: US (occurrence: US)
  Receive Date: 20180516
  Receipt Date: 20181107
  Transmission Date: 20190204
  Serious: Yes (Hospitalization, Disabling)
  Sender: FDA-Public Use
  Company Number: US-JNJFOC-20180518771

PATIENT
  Age: 58 Year
  Sex: Female

DRUGS (1)
  1. INVOKANA [Suspect]
     Active Substance: CANAGLIFLOZIN
     Indication: TYPE 2 DIABETES MELLITUS
     Route: 048
     Dates: start: 20140723, end: 20150613

REACTIONS (4)
  - Osteomyelitis [Unknown]
  - Device related infection [Unknown]
  - Leg amputation [Unknown]
  - Amputation [Unknown]

NARRATIVE: CASE EVENT DATE: 2015
